FAERS Safety Report 8756899 (Version 1)
Quarter: 2012Q4

REPORT INFORMATION
  Report Type: 
  Country: US (occurrence: US)
  Receive Date: 20120828
  Receipt Date: 20120828
  Transmission Date: 20130627
  Serious: Yes (Hospitalization)
  Sender: FDA-Public Use
  Company Number: US-BAYER-2012-086851

PATIENT
  Age: 50 Year
  Sex: Female
  Weight: 52.61 kg

DRUGS (6)
  1. YAZ [Suspect]
  2. YASMIN [Suspect]
  3. OCELLA [Suspect]
  4. VALTREX [Concomitant]
     Indication: GENITAL HERPES
     Dosage: 500 mg, UNK
  5. EFFEXOR XR [Concomitant]
     Dosage: 37.5 mg, 1 QD
     Route: 048
  6. IRON [Concomitant]
     Indication: IRON DEFICIENCY ANAEMIA

REACTIONS (1)
  - Deep vein thrombosis [None]
